FAERS Safety Report 15686761 (Version 2)
Quarter: 2019Q1

REPORT INFORMATION
  Report Type: Spontaneous
  Country: FR (occurrence: FR)
  Receive Date: 20181204
  Receipt Date: 20190116
  Transmission Date: 20190417
  Serious: Yes (Other)
  Sender: FDA-Public Use
  Company Number: FR-GUERBET-FR-20180685

PATIENT
  Age: 72 Year
  Sex: Female

DRUGS (1)
  1. DOTAREM [Suspect]
     Active Substance: GADOTERATE MEGLUMINE
     Indication: NUCLEAR MAGNETIC RESONANCE IMAGING
     Route: 065
     Dates: start: 20180406, end: 20180406

REACTIONS (3)
  - Spinal pain [Not Recovered/Not Resolved]
  - Dermatosis [Not Recovered/Not Resolved]
  - Diaphragmatic spasm [Not Recovered/Not Resolved]

NARRATIVE: CASE EVENT DATE: 201809
